FAERS Safety Report 6734565-1 (Version None)
Quarter: 2010Q2

REPORT INFORMATION
  Report Type: 
  Country: None (occurrence: None)
  Receive Date: 20100520
  Receipt Date: 20100415
  Transmission Date: 20101027
  Serious: No
  Sender: FDA-Public Use
  Company Number: US-ALLERGAN-1004954US

PATIENT
  Sex: Female

DRUGS (4)
  1. SANCTURA XR [Suspect]
     Indication: HYPERTONIC BLADDER
     Dosage: UNK
     Route: 048
     Dates: start: 20100408, end: 20100411
  2. AMLODIPINE BESYLATE [Concomitant]
  3. METOPROLOL TARTRATE [Concomitant]
  4. VENTOLIN HFA [Concomitant]

REACTIONS (4)
  - BACK PAIN [None]
  - MUSCLE SPASMS [None]
  - NAUSEA [None]
  - VERTIGO [None]
